FAERS Safety Report 13891258 (Version 1)
Quarter: 2017Q3

REPORT INFORMATION
  Report Type: Spontaneous
  Country: GB (occurrence: GB)
  Receive Date: 20170822
  Receipt Date: 20170822
  Transmission Date: 20171127
  Serious: Yes (Death, Hospitalization, Other)
  Sender: FDA-Public Use
  Company Number: GB-PFIZER INC-2017360741

PATIENT
  Age: 96 Year
  Sex: Female

DRUGS (4)
  1. CEPHALEXIN /00145501/ [Suspect]
     Active Substance: CEPHALEXIN
     Indication: URINARY TRACT INFECTION
     Dosage: UNK
  2. IBUPROFEN. [Suspect]
     Active Substance: IBUPROFEN
     Indication: PAIN
     Dosage: 400 MG, 3X/DAY
     Dates: start: 2017
  3. XARELTO [Suspect]
     Active Substance: RIVAROXABAN
     Indication: DEEP VEIN THROMBOSIS
     Dosage: 15 MG, 2X/DAY
     Dates: start: 201702
  4. XARELTO [Suspect]
     Active Substance: RIVAROXABAN
     Dosage: 20 MG, 1X/DAY
     Dates: start: 2017

REACTIONS (5)
  - Melaena [Unknown]
  - Gastrointestinal haemorrhage [Unknown]
  - Death [Fatal]
  - Acute kidney injury [Unknown]
  - Incorrect dose administered [Unknown]
